FAERS Safety Report 15713041 (Version 5)
Quarter: 2019Q3

REPORT INFORMATION
  Report Type: Spontaneous
  Country: JP (occurrence: JP)
  Receive Date: 20181212
  Receipt Date: 20190716
  Transmission Date: 20191004
  Serious: Yes (Hospitalization, Disabling, Other)
  Sender: FDA-Public Use
  Company Number: JP-ASTRAZENECA-2018SF61287

PATIENT
  Age: 26950 Day
  Sex: Female
  Weight: 48 kg

DRUGS (1)
  1. IMFINZI [Suspect]
     Active Substance: DURVALUMAB
     Indication: NON-SMALL CELL LUNG CANCER
     Route: 041
     Dates: start: 20181116, end: 20181130

REACTIONS (4)
  - Radiation pneumonitis [Recovered/Resolved with Sequelae]
  - Respiratory failure [Unknown]
  - Deep vein thrombosis [Unknown]
  - Pulmonary artery thrombosis [Recovered/Resolved]

NARRATIVE: CASE EVENT DATE: 20181120
